FAERS Safety Report 14124868 (Version 1)
Quarter: 2017Q4

REPORT INFORMATION
  Report Type: Spontaneous
  Country: US (occurrence: US)
  Receive Date: 20171025
  Receipt Date: 20171025
  Transmission Date: 20180321
  Serious: Yes (Hospitalization)
  Sender: FDA-Public Use
  Company Number: None

PATIENT
  Age: 54 Year
  Sex: Male
  Weight: 97.5 kg

DRUGS (1)
  1. ISOVUE-M 300 [Suspect]
     Active Substance: IOPAMIDOL
     Indication: DIAGNOSTIC PROCEDURE
     Dosage: STRENGTH:61% ML MILLILITRE(S)
     Route: 037
     Dates: start: 20171017, end: 20171017

REACTIONS (1)
  - Headache [None]

NARRATIVE: CASE EVENT DATE: 20171018
